FAERS Safety Report 10407212 (Version 1)
Quarter: 2014Q3

REPORT INFORMATION
  Report Type: Spontaneous
  Country: IT (occurrence: IT)
  Receive Date: 20140825
  Receipt Date: 20140825
  Transmission Date: 20150326
  Serious: Yes (Life-Threatening)
  Sender: FDA-Public Use
  Company Number: IT-TEVA-502989ISR

PATIENT
  Age: 55 Year
  Sex: Female
  Weight: 84 kg

DRUGS (4)
  1. CARBOPLATINO TEVA [Suspect]
     Active Substance: CARBOPLATIN
     Indication: OVARIAN CANCER
     Dosage: 752 MILLIGRAM DAILY;
     Route: 042
     Dates: start: 20140624, end: 20140812
  2. ZANTAZ 50MG/5ML [Concomitant]
     Indication: PREMEDICATION
     Dosage: 50 MILLIGRAM DAILY;
     Route: 042
     Dates: start: 20140624, end: 20140812
  3. GRANISETRON KABI 1MG/ML [Concomitant]
     Indication: PREMEDICATION
     Dosage: 3 MILLIGRAM DAILY;
     Route: 042
     Dates: start: 20140624, end: 20140812
  4. DESAMETASONE FOSFATO HOSPIRA 8NG/2ML [Concomitant]
     Indication: PREMEDICATION
     Dosage: 16 MILLIGRAM DAILY;
     Route: 042
     Dates: start: 20140624, end: 20140812

REACTIONS (3)
  - Feeling hot [Recovered/Resolved]
  - Vomiting [Recovered/Resolved]
  - Abdominal pain [Recovered/Resolved]

NARRATIVE: CASE EVENT DATE: 20140812
